FAERS Safety Report 17173327 (Version 1)
Quarter: 2019Q4

REPORT INFORMATION
  Report Type: Spontaneous
  Country: US (occurrence: US)
  Receive Date: 20191126
  Receipt Date: 20191126
  Transmission Date: 20200122
  Serious: No
  Sender: FDA-Public Use
  Company Number: None

PATIENT
  Age: 60 Year
  Sex: Female

DRUGS (2)
  1. BENZTROPINE TAB 1MG [Suspect]
     Active Substance: BENZTROPINE
     Indication: TARDIVE DYSKINESIA
     Route: 048
     Dates: start: 201910, end: 201911
  2. BENZTROPINE TAB 1MG [Suspect]
     Active Substance: BENZTROPINE
     Indication: SCHIZOPHRENIA
     Route: 048
     Dates: start: 201910, end: 201911

REACTIONS (3)
  - Memory impairment [None]
  - Malaise [None]
  - Somnolence [None]

NARRATIVE: CASE EVENT DATE: 20191101
